FAERS Safety Report 5889683-7 (Version None)
Quarter: 2008Q3

REPORT INFORMATION
  Report Type: 
  Country: None (occurrence: None)
  Receive Date: 20080919
  Receipt Date: 20080909
  Transmission Date: 20090109
  Serious: Yes (Other)
  Sender: FDA-Public Use
  Company Number: DE-JNJFOC-20080900749

PATIENT
  Age: 25 Year
  Sex: Female

DRUGS (1)
  1. IONSYS [Suspect]
     Indication: ACCIDENTAL EXPOSURE
     Route: 044

REACTIONS (2)
  - ACCIDENTAL EXPOSURE [None]
  - ANAPHYLACTIC SHOCK [None]
